FAERS Safety Report 10261069 (Version 1)
Quarter: 2014Q2

REPORT INFORMATION
  Report Type: Spontaneous
  Country: US (occurrence: US)
  Receive Date: 20140626
  Receipt Date: 20140626
  Transmission Date: 20141212
  Serious: No
  Sender: FDA-Public Use
  Company Number: US-PFIZER INC-2014176771

PATIENT
  Age: 57 Year
  Sex: Female
  Weight: 52.15 kg

DRUGS (7)
  1. EFFEXOR XR [Suspect]
     Indication: HOT FLUSH
     Dosage: 37.5 MG, 1X/DAY
     Route: 048
     Dates: start: 201305, end: 201308
  2. EFFEXOR XR [Suspect]
     Dosage: 37.5 MG, 1X/DAY
     Route: 048
     Dates: start: 201310
  3. ZOLPIDEM [Concomitant]
     Indication: INSOMNIA
     Dosage: UNK
  4. IRON [Concomitant]
     Dosage: UNK
  5. CENTRUM SILVER [Concomitant]
     Dosage: UNK
  6. LUTEIN [Concomitant]
     Dosage: 20 MG, UNK
  7. PROBIOTIC [Concomitant]
     Dosage: 10 BILLION, 2X/DAY

REACTIONS (6)
  - Abdominal discomfort [Unknown]
  - Diarrhoea [Unknown]
  - Nausea [Unknown]
  - Gastrointestinal disorder [Unknown]
  - Feeling hot [Unknown]
  - Nasopharyngitis [Unknown]
